APPROVED DRUG PRODUCT: PROPYLTHIOURACIL
Active Ingredient: PROPYLTHIOURACIL
Strength: 50MG
Dosage Form/Route: TABLET;ORAL
Application: A208867 | Product #001 | TE Code: AB
Applicant: MACLEODS PHARMACEUTICALS LTD
Approved: May 10, 2023 | RLD: No | RS: No | Type: RX